FAERS Safety Report 9067656 (Version 3)
Quarter: 2013Q2

REPORT INFORMATION
  Report Type: Spontaneous
  Country: US (occurrence: US)
  Receive Date: 20130128
  Receipt Date: 20130430
  Transmission Date: 20140414
  Serious: Yes (Hospitalization, Disabling, Other)
  Sender: FDA-Public Use
  Company Number: US-PFIZER INC-US-WYE-H02058508

PATIENT
  Age: 50 Year
  Sex: Female
  Weight: 79 kg

DRUGS (7)
  1. PREMARIN [Suspect]
     Indication: HORMONE REPLACEMENT THERAPY
     Dosage: 0.625 MG, 1X/DAY
     Route: 048
     Dates: start: 20021011, end: 20050503
  2. PREMARIN [Suspect]
     Indication: MENOPAUSAL SYMPTOMS
     Dosage: UNK
     Dates: start: 2005
  3. NORVASC [Concomitant]
     Dosage: UNK
     Route: 048
  4. LIPITOR [Concomitant]
     Dosage: UNK
     Route: 048
  5. COZAAR [Concomitant]
     Dosage: UNK
     Route: 048
  6. ZOLOFT [Concomitant]
     Indication: BLOOD PRESSURE ABNORMAL
     Dosage: UNK, 1X/DAY
  7. GEODON [Concomitant]
     Indication: BLOOD PRESSURE ABNORMAL
     Dosage: UNK, 1X/DAY

REACTIONS (7)
  - Breast cancer metastatic [Unknown]
  - Deafness unilateral [Not Recovered/Not Resolved]
  - Breast cancer [Recovered/Resolved]
  - Limb discomfort [Not Recovered/Not Resolved]
  - Skin discolouration [Unknown]
  - Limb asymmetry [Unknown]
  - Oedema peripheral [Unknown]
